FAERS Safety Report 5847682-5 (Version None)
Quarter: 2008Q3

REPORT INFORMATION
  Report Type: 
  Country: None (occurrence: None)
  Receive Date: 20080818
  Receipt Date: 20080818
  Transmission Date: 20090109
  Serious: Yes (Life-Threatening, Hospitalization, Other)
  Sender: FDA-Public Use
  Company Number: None

PATIENT
  Sex: Female
  Weight: 90.7194 kg

DRUGS (2)
  1. HEPARIN [Suspect]
     Indication: THROMBOSIS PROPHYLAXIS
     Dosage: IV
     Route: 042
     Dates: start: 20060327, end: 20060402
  2. LOVENOX [Suspect]
     Indication: THROMBOSIS PROPHYLAXIS
     Dosage: IV
     Route: 042
     Dates: start: 20060327, end: 20060402

REACTIONS (7)
  - ADRENAL DISORDER [None]
  - BLOOD PRESSURE ABNORMAL [None]
  - EARLY RETIREMENT [None]
  - HEPARIN-INDUCED THROMBOCYTOPENIA [None]
  - INFECTION [None]
  - PULMONARY THROMBOSIS [None]
  - THROMBOSIS [None]
